FAERS Safety Report 19079209 (Version 6)
Quarter: 2022Q2

REPORT INFORMATION
  Report Type: Spontaneous
  Country: US (occurrence: US)
  Receive Date: 20210331
  Receipt Date: 20220524
  Transmission Date: 20220721
  Serious: Yes (Other)
  Sender: FDA-Public Use
  Company Number: US-PFIZER INC-2021304515

PATIENT
  Age: 47 Year
  Sex: Female
  Weight: 70.31 kg

DRUGS (3)
  1. PREMPRO [Suspect]
     Active Substance: ESTROGENS, CONJUGATED\MEDROXYPROGESTERONE ACETATE
     Indication: Hormone replacement therapy
     Dosage: 0.45 MG /1.5 MG; 1 DF, 1X/DAY
     Route: 048
  2. PREMPRO [Suspect]
     Active Substance: ESTROGENS, CONJUGATED\MEDROXYPROGESTERONE ACETATE
     Dosage: 0.3 MG/1.5 MG
     Dates: start: 202104
  3. PREMPRO [Suspect]
     Active Substance: ESTROGENS, CONJUGATED\MEDROXYPROGESTERONE ACETATE
     Dosage: 0.45 MG, 1X/DAY
     Route: 048

REACTIONS (10)
  - Intellectual disability [Unknown]
  - Therapeutic response unexpected [Unknown]
  - Anxiety [Unknown]
  - Abdominal distension [Unknown]
  - Polycystic ovaries [Unknown]
  - Endometriosis [Unknown]
  - Drug ineffective [Unknown]
  - Product dispensing error [Unknown]
  - Incorrect dose administered [Unknown]
  - Product prescribing error [Unknown]

NARRATIVE: CASE EVENT DATE: 20210401
